FAERS Safety Report 17678515 (Version 1)
Quarter: 2020Q2

REPORT INFORMATION
  Report Type: Report from Study
  Country: US (occurrence: US)
  Receive Date: 20200417
  Receipt Date: 20200417
  Transmission Date: 20200714
  Serious: Yes (Hospitalization, Other)
  Sender: FDA-Public Use
  Company Number: US-TEVA-2020-US-1203509

PATIENT
  Sex: Female

DRUGS (1)
  1. COPAXONE [Suspect]
     Active Substance: GLATIRAMER ACETATE
     Indication: MULTIPLE SCLEROSIS
     Route: 058
     Dates: start: 20200226

REACTIONS (10)
  - Pyrexia [Unknown]
  - Asthenia [Unknown]
  - Blood potassium decreased [Unknown]
  - Presyncope [Unknown]
  - Fatigue [Unknown]
  - Tremor [Unknown]
  - Heart rate decreased [Unknown]
  - Multiple sclerosis [Unknown]
  - Muscular weakness [Unknown]
  - Injection site infection [Unknown]

NARRATIVE: CASE EVENT DATE: 2020
